FAERS Safety Report 8221892-4 (Version None)
Quarter: 2012Q1

REPORT INFORMATION
  Report Type: 
  Country: None (occurrence: None)
  Receive Date: 20120307
  Receipt Date: 20110505
  Transmission Date: 20120608
  Serious: Yes (Other)
  Sender: FDA-Public Use
  Company Number: PHHY2011US39646

PATIENT
  Age: 12 Year
  Sex: Female

DRUGS (3)
  1. AFINITOR [Suspect]
     Indication: TUBEROUS SCLEROSIS
     Dosage: 5 MG DAILY, ORAL
     Route: 048
     Dates: start: 20100101
  2. ALLEGRA [Concomitant]
  3. VEMPAT [Concomitant]

REACTIONS (3)
  - HERPES DERMATITIS [None]
  - MOUTH HAEMORRHAGE [None]
  - WEIGHT DECREASED [None]
